FAERS Safety Report 7896972-3 (Version None)
Quarter: 2011Q4

REPORT INFORMATION
  Report Type: 
  Country: None (occurrence: None)
  Receive Date: 20111107
  Receipt Date: 20111103
  Transmission Date: 20120403
  Serious: No
  Sender: FDA-Public Use
  Company Number: US-PFIZER INC-2011270928

PATIENT
  Sex: Male
  Weight: 86.168 kg

DRUGS (5)
  1. GAS-X [Suspect]
     Indication: FLATULENCE
     Dosage: UNK, 2X/DAY
     Route: 048
     Dates: start: 20111001, end: 20111001
  2. ASPIRIN [Concomitant]
     Indication: CARDIAC DISORDER
     Dosage: 81 MG, DAILY
  3. GAS-X [Suspect]
     Indication: ABDOMINAL DISTENSION
  4. CHANTIX [Suspect]
     Indication: SMOKING CESSATION THERAPY
     Dosage: 0.5 MG, DAILY
     Route: 048
     Dates: start: 20111002, end: 20111001
  5. CHANTIX [Suspect]
     Dosage: 1 MG, 2X/DAY
     Route: 048
     Dates: start: 20111001

REACTIONS (2)
  - FLATULENCE [None]
  - ABDOMINAL DISTENSION [None]
